FAERS Safety Report 6058165-4 (Version None)
Quarter: 2009Q1

REPORT INFORMATION
  Report Type: 
  Country: None (occurrence: None)
  Receive Date: 20090127
  Receipt Date: 20090116
  Transmission Date: 20090719
  Serious: Yes (Other)
  Sender: FDA-Public Use
  Company Number: 1000002977

PATIENT
  Age: 89 Year
  Sex: Female
  Weight: 45 kg

DRUGS (4)
  1. MEMANTINE HCL [Suspect]
     Indication: DEMENTIA ALZHEIMER'S TYPE
     Dosage: 20 MG (10 MG, 2 IN 1 D) ,ORAL
     Route: 048
     Dates: end: 20080919
  2. OMEPRAZOLE [Suspect]
     Dosage: 20 MG (20 MG, 1 IN 1 D) ,ORAL
     Route: 048
     Dates: end: 20080919
  3. DAFLON [Suspect]
     Dosage: 1000 MG (500 MG, 2 IN 1 D)
     Dates: end: 20080919
  4. IMOVANE [Suspect]
     Dosage: 3.75 MG (3.75 MG, 1 IN 1 D)
     Dates: end: 20080919

REACTIONS (4)
  - ALANINE AMINOTRANSFERASE INCREASED [None]
  - ASPARTATE AMINOTRANSFERASE INCREASED [None]
  - BILE DUCT OBSTRUCTION [None]
  - GAMMA-GLUTAMYLTRANSFERASE INCREASED [None]
